FAERS Safety Report 10591965 (Version 2)
Quarter: 2015Q1

REPORT INFORMATION
  Report Type: Spontaneous
  Country: CA (occurrence: CA)
  Receive Date: 20141119
  Receipt Date: 20150119
  Transmission Date: 20150720
  Serious: Yes (Life-Threatening)
  Sender: FDA-Public Use
  Company Number: CA-BEH-2014046345

PATIENT
  Age: 62 Year
  Sex: Female
  Weight: 44 kg

DRUGS (19)
  1. NTG [Concomitant]
     Active Substance: NITROGLYCERIN
     Dosage: PUFFS
     Route: 055
     Dates: start: 20140926
  2. NTG [Concomitant]
     Active Substance: NITROGLYCERIN
     Dosage: PUFFS
     Route: 055
     Dates: start: 20140926
  3. BERIPLEX P/N [Suspect]
     Active Substance: COAGULATION FACTOR IX HUMAN\COAGULATION FACTOR VII HUMAN\COAGULATION FACTOR X HUMAN\PROTEIN C\PROTEIN S HUMAN\PROTHROMBIN
     Indication: PROCOAGULANT THERAPY
     Dates: start: 20140926, end: 20140926
  4. POTASSIUM CHLORIDE. [Concomitant]
     Active Substance: POTASSIUM CHLORIDE
     Route: 048
  5. ASA [Concomitant]
     Active Substance: ASPIRIN
     Route: 048
     Dates: start: 20140926
  6. KCL (K-DUR) [Concomitant]
     Dosage: 2 TABS
     Route: 048
  7. TYLENOL [Concomitant]
     Active Substance: ACETAMINOPHEN
     Dosage: GIVEN 02:00
     Route: 048
     Dates: start: 20140926
  8. LASIX [Concomitant]
     Active Substance: FUROSEMIDE
     Route: 048
  9. ALDACTONE [Concomitant]
     Active Substance: SPIRONOLACTONE
     Dosage: QAM
     Route: 048
  10. INSULIN-TORONTO [Concomitant]
     Dosage: 4^U^ AT 14:00
     Dates: start: 20140926
  11. MULTIVITAMINS [Concomitant]
     Active Substance: VITAMINS
     Route: 048
  12. FOLIC ACID. [Concomitant]
     Active Substance: FOLIC ACID
     Route: 048
  13. MADOX [Concomitant]
     Route: 048
     Dates: start: 20140926
  14. PANTALOC [Concomitant]
     Route: 048
  15. VITAMIN K [Suspect]
     Active Substance: PHYTONADIONE
     Dosage: IV IN 50 ML NACL 0.9% OVER 30 MINUTES
     Route: 042
     Dates: start: 20140926
  16. CIPRO [Concomitant]
     Active Substance: CIPROFLOXACIN HYDROCHLORIDE
     Dates: end: 20141001
  17. DILTIAZEM [Concomitant]
     Active Substance: DILTIAZEM
  18. MAGNESIUM ROUGIER [Concomitant]
     Dosage: 100 MG/ML
     Route: 048
  19. TYLENOL [Concomitant]
     Active Substance: ACETAMINOPHEN
     Dosage: GIVEN 08:00
     Route: 048
     Dates: start: 20140926

REACTIONS (11)
  - Panic reaction [Recovered/Resolved]
  - Acute respiratory distress syndrome [Recovered/Resolved]
  - Feeling hot [Recovered/Resolved]
  - Chest pain [Recovered/Resolved]
  - Drug administration error [Recovered/Resolved]
  - Dyspnoea [Recovered/Resolved]
  - Use of accessory respiratory muscles [Recovered/Resolved]
  - Hypersensitivity [Recovered/Resolved]
  - Wheezing [Recovered/Resolved]
  - Dizziness [Recovered/Resolved]
  - Anxiety [Recovered/Resolved]

NARRATIVE: CASE EVENT DATE: 20140926
